FAERS Safety Report 5023341-6 (Version None)
Quarter: 2006Q2

REPORT INFORMATION
  Report Type: 
  Country: None (occurrence: None)
  Receive Date: 20060612
  Receipt Date: 20060601
  Transmission Date: 20061013
  Serious: Yes (Hospitalization)
  Sender: FDA-Public Use
  Company Number: US-KINGPHARMUSA00001-K200600713

PATIENT
  Age: 48 Year
  Sex: Female

DRUGS (3)
  1. SONATA [Suspect]
     Dosage: 140 MG, SINGLE
     Route: 048
     Dates: start: 20060528, end: 20060528
  2. MIRTAZAPINE [Suspect]
     Dosage: 1500 MG, SINGLE
     Route: 048
     Dates: start: 20060528, end: 20060528
  3. UNKNOWN BLUE LIQUID [Suspect]

REACTIONS (5)
  - FATIGUE [None]
  - INTENTIONAL OVERDOSE [None]
  - MULTIPLE DRUG OVERDOSE INTENTIONAL [None]
  - SUICIDE ATTEMPT [None]
  - TACHYCARDIA [None]
